FAERS Safety Report 20040148 (Version 2)
Quarter: 2022Q2

REPORT INFORMATION
  Report Type: Spontaneous
  Country: US (occurrence: US)
  Receive Date: 20211106
  Receipt Date: 20220412
  Transmission Date: 20220720
  Serious: No
  Sender: FDA-Public Use
  Company Number: US-SA-SAC20211102000169

PATIENT
  Age: 31 Year
  Sex: Male

DRUGS (5)
  1. DUPIXENT [Suspect]
     Active Substance: DUPILUMAB
     Indication: Asthma
     Dosage: 300 MG, QOW
     Route: 058
     Dates: start: 20191205
  2. DUPIXENT [Suspect]
     Active Substance: DUPILUMAB
     Indication: Nasal polyps
  3. DUPIXENT [Suspect]
     Active Substance: DUPILUMAB
     Indication: Rhinitis allergic
  4. DUPIXENT [Suspect]
     Active Substance: DUPILUMAB
     Indication: Orbital cyst
  5. DUPIXENT [Suspect]
     Active Substance: DUPILUMAB
     Indication: Anosmia

REACTIONS (3)
  - Product use in unapproved indication [Unknown]
  - Adverse event [Unknown]
  - Product use issue [Unknown]
